FAERS Safety Report 9285111 (Version 2)
Quarter: 2013Q3

REPORT INFORMATION
  Report Type: Report from Study
  Country: JP (occurrence: JP)
  Receive Date: 20130513
  Receipt Date: 20130708
  Transmission Date: 20140515
  Serious: Yes (Hospitalization)
  Sender: FDA-Public Use
  Company Number: JP-ROCHE-1223269

PATIENT
  Age: 74 Year
  Sex: Male

DRUGS (10)
  1. METHOXY POLYETHYLENE GLYCOL-EPOETIN BETA [Suspect]
     Indication: NEPHROGENIC ANAEMIA
     Route: 042
     Dates: start: 20120220, end: 20120220
  2. METHOXY POLYETHYLENE GLYCOL-EPOETIN BETA [Suspect]
     Indication: NEPHROGENIC ANAEMIA
     Route: 042
     Dates: start: 20120416, end: 20120416
  3. METHOXY POLYETHYLENE GLYCOL-EPOETIN BETA [Suspect]
     Indication: NEPHROGENIC ANAEMIA
     Dosage: DOSE INCREASED
     Route: 042
     Dates: start: 20120521, end: 20120521
  4. OXAROL [Concomitant]
     Dosage: DIALYSIS DAY
     Route: 042
  5. KINEDAK [Concomitant]
     Indication: DIABETIC NEPHROPATHY
     Route: 048
  6. CALTAN [Concomitant]
     Route: 048
  7. PLETAAL [Concomitant]
     Route: 048
  8. NORVASC [Concomitant]
     Route: 048
     Dates: end: 20120725
  9. DIOVAN [Concomitant]
     Route: 048
     Dates: end: 20120813
  10. DIOVAN [Concomitant]
     Route: 048
     Dates: start: 20130204

REACTIONS (1)
  - Anaemia [Recovering/Resolving]
